FAERS Safety Report 11908312 (Version 3)
Quarter: 2016Q1

REPORT INFORMATION
  Report Type: Spontaneous
  Country: US (occurrence: US)
  Receive Date: 20160111
  Receipt Date: 20160309
  Transmission Date: 20160526
  Serious: Yes (Hospitalization)
  Sender: FDA-Public Use
  Company Number: US-PFIZER INC-2015474154

PATIENT
  Age: 68 Year
  Sex: Female

DRUGS (3)
  1. LYRICA [Suspect]
     Active Substance: PREGABALIN
     Dosage: 100 MG, UNK
  2. LYRICA [Suspect]
     Active Substance: PREGABALIN
     Dosage: 75 MG, UNK
  3. LYRICA [Suspect]
     Active Substance: PREGABALIN
     Dosage: 250 MG, DAILY (5 PILLS OF 50 MG EVERY DAY)

REACTIONS (8)
  - Reaction to drug excipients [Unknown]
  - Muscle disorder [Unknown]
  - Hypoaesthesia [Unknown]
  - Throat irritation [Unknown]
  - Dysgraphia [Unknown]
  - Pain [Not Recovered/Not Resolved]
  - Asthma [Unknown]
  - Quality of life decreased [Unknown]
